FAERS Safety Report 7237865-4 (Version None)
Quarter: 2011Q1

REPORT INFORMATION
  Report Type: 
  Country: None (occurrence: None)
  Receive Date: 20110121
  Receipt Date: 20101213
  Transmission Date: 20110831
  Serious: Yes (Other)
  Sender: FDA-Public Use
  Company Number: AU-ROCHE-754258

PATIENT
  Sex: Female

DRUGS (5)
  1. ATORVASTATIN CALCIUM [Concomitant]
  2. CEFTRIAXONE SODIUM [Suspect]
     Dosage: FREQUENCY: DAILY.
     Route: 042
     Dates: start: 20100913, end: 20100921
  3. ESOMEPRAZOLE MAGNESIUM TRIHYDRATE [Concomitant]
  4. ASPIRIN [Suspect]
     Dosage: FREQUENCY: DAILY.
     Route: 065
     Dates: start: 20100913, end: 20100920
  5. CANDESARTAN/HYDROCHLOROTHIAZIDE [Concomitant]
     Dosage: FREQUENCY: DAILY.
     Dates: start: 20100920

REACTIONS (1)
  - SUBMAXILLARY GLAND ENLARGEMENT [None]
